FAERS Safety Report 11424703 (Version 2)
Quarter: 2015Q4

REPORT INFORMATION
  Report Type: Spontaneous
  Country: US (occurrence: US)
  Receive Date: 20150827
  Receipt Date: 20151001
  Transmission Date: 20160304
  Serious: Yes (Hospitalization, Other)
  Sender: FDA-Public Use
  Company Number: US-GLAXOSMITHKLINE-US2015122786

PATIENT
  Age: 57 Year
  Sex: Female

DRUGS (12)
  1. XARELTO [Suspect]
     Active Substance: RIVAROXABAN
     Indication: THROMBOSIS
     Dosage: 20 MG, QD
     Route: 048
     Dates: start: 201502
  2. XARELTO [Suspect]
     Active Substance: RIVAROXABAN
     Route: 048
     Dates: start: 201502
  3. CALCIUM [Concomitant]
     Active Substance: CALCIUM
  4. FOLIC ACID. [Concomitant]
     Active Substance: FOLIC ACID
  5. LOSARTAN. [Concomitant]
     Active Substance: LOSARTAN
  6. NIFEDIPINE XL [Concomitant]
     Active Substance: NIFEDIPINE
  7. BENLYSTA [Suspect]
     Active Substance: BELIMUMAB
     Dosage: 910 MG, UNK
     Route: 042
  8. XARELTO [Suspect]
     Active Substance: RIVAROXABAN
  9. XARELTO [Suspect]
     Active Substance: RIVAROXABAN
  10. HYDROXYCHLOROQUINE [Concomitant]
     Active Substance: HYDROXYCHLOROQUINE
  11. METHOTREXATE [Concomitant]
     Active Substance: METHOTREXATE
  12. BENLYSTA [Suspect]
     Active Substance: BELIMUMAB
     Indication: SYSTEMIC LUPUS ERYTHEMATOSUS
     Dosage: 960 MG, CYC
     Route: 042
     Dates: start: 20131001

REACTIONS (10)
  - Cerebrovascular accident [Recovered/Resolved]
  - Emergency care [Recovered/Resolved]
  - Visual impairment [Not Recovered/Not Resolved]
  - Thrombosis [Recovered/Resolved]
  - Visual acuity reduced [Not Recovered/Not Resolved]
  - Drug ineffective [Unknown]
  - Muscular weakness [Unknown]
  - Impaired driving ability [Not Recovered/Not Resolved]
  - Infarction [Recovered/Resolved]
  - Weight decreased [Unknown]

NARRATIVE: CASE EVENT DATE: 20150202
